FAERS Safety Report 8290210-8 (Version None)
Quarter: 2012Q2

REPORT INFORMATION
  Report Type: 
  Country: None (occurrence: None)
  Receive Date: 20120417
  Receipt Date: 20120405
  Transmission Date: 20120825
  Serious: Yes (Hospitalization)
  Sender: FDA-Public Use
  Company Number: US-ACTELION-A-US2012-63220

PATIENT

DRUGS (5)
  1. TRACLEER [Suspect]
     Indication: PULMONARY ARTERIAL HYPERTENSION
     Dosage: 125 MG, UNK
     Route: 048
     Dates: start: 20111012
  2. ADCIRCA [Concomitant]
  3. DIGOXIN [Concomitant]
  4. COUMADIN [Concomitant]
  5. TRACLEER [Suspect]
     Dosage: 62.5 MG, UNK
     Route: 048

REACTIONS (5)
  - DYSPNOEA [None]
  - TRANSFUSION [None]
  - HAEMORRHAGE [None]
  - FLUID OVERLOAD [None]
  - HYPOTENSION [None]
